FAERS Safety Report 17496311 (Version 2)
Quarter: 2020Q1

REPORT INFORMATION
  Report Type: Spontaneous
  Country: US (occurrence: US)
  Receive Date: 20200303
  Receipt Date: 20200313
  Transmission Date: 20200409
  Serious: No
  Sender: FDA-Public Use
  Company Number: US-MACLEODS PHARMACEUTICALS US LTD-MAC2020025419

PATIENT

DRUGS (5)
  1. PRAMIPEXOLE 4.5 MG EXTENDED RELEASE [Suspect]
     Active Substance: PRAMIPEXOLE
     Indication: PARKINSON^S DISEASE
     Dosage: 75 MG, 33342-214-07
     Route: 065
     Dates: start: 2006, end: 2007
  2. AZILECT [Concomitant]
     Active Substance: RASAGILINE MESYLATE
     Indication: PRODUCT USED FOR UNKNOWN INDICATION
     Dosage: 1 MILLIGRAM
     Route: 065
  3. ARMODAFINIL. [Concomitant]
     Active Substance: ARMODAFINIL
     Indication: PRODUCT USED FOR UNKNOWN INDICATION
     Dosage: 150 MILLIGRAM, TABLET
     Route: 048
  4. PRAMIPEXOLE 4.5 MG EXTENDED RELEASE [Suspect]
     Active Substance: PRAMIPEXOLE
     Dosage: 4.5 MILLIGRAM, MIRAPEX ER (PRAMIPEXOLE)
     Route: 065
     Dates: start: 201808, end: 201902
  5. DUTASTERIDE. [Concomitant]
     Active Substance: DUTASTERIDE
     Indication: PRODUCT USED FOR UNKNOWN INDICATION
     Dosage: CAPSULE
     Route: 048

REACTIONS (3)
  - Back pain [Not Recovered/Not Resolved]
  - Scoliosis [Not Recovered/Not Resolved]
  - Pleurothotonus [Not Recovered/Not Resolved]

NARRATIVE: CASE EVENT DATE: 201703
